FAERS Safety Report 12063995 (Version 1)
Quarter: 2016Q1

REPORT INFORMATION
  Report Type: Spontaneous
  Country: US (occurrence: US)
  Receive Date: 20160210
  Receipt Date: 20160210
  Transmission Date: 20160526
  Serious: No
  Sender: FDA-Public Use
  Company Number: US-ABBVIE-15P-163-1530470-00

PATIENT
  Age: 27 Year
  Sex: Female

DRUGS (3)
  1. HUMIRA [Suspect]
     Active Substance: ADALIMUMAB
     Route: 058
     Dates: start: 2015, end: 2015
  2. HUMIRA [Suspect]
     Active Substance: ADALIMUMAB
     Dosage: NEXT TWO SHOTS AS DIRECTED
     Route: 058
     Dates: start: 2015, end: 2015
  3. HUMIRA [Suspect]
     Active Substance: ADALIMUMAB
     Indication: CROHN^S DISEASE
     Dosage: INITIAL FOUR SHOTS
     Route: 058
     Dates: start: 20151001, end: 20151001

REACTIONS (10)
  - Feeling abnormal [Unknown]
  - Psoriasis [Unknown]
  - Abdominal pain upper [Unknown]
  - Depression [Unknown]
  - Erythema [Unknown]
  - Self esteem decreased [Unknown]
  - Crying [Unknown]
  - Dry skin [Unknown]
  - Rash macular [Unknown]
  - Rash generalised [Unknown]

NARRATIVE: CASE EVENT DATE: 2015
